FAERS Safety Report 5702324-4 (Version None)
Quarter: 2008Q2

REPORT INFORMATION
  Report Type: 
  Country: None (occurrence: None)
  Receive Date: 20080411
  Receipt Date: 20080408
  Transmission Date: 20081010
  Serious: Yes (Death, Hospitalization)
  Sender: FDA-Public Use
  Company Number: US-BRISTOL-MYERS SQUIBB COMPANY-14143127

PATIENT
  Sex: Male

DRUGS (8)
  1. COUMADIN [Suspect]
  2. COZAAR [Suspect]
  3. COREG [Suspect]
  4. LANTUS [Suspect]
  5. HUMALOG [Suspect]
  6. REGLAN [Suspect]
  7. LEVAQUIN [Suspect]
  8. HYCODAN [Suspect]

REACTIONS (3)
  - CARDIAC ARREST [None]
  - CEREBROVASCULAR ACCIDENT [None]
  - LUNG INFILTRATION [None]
